FAERS Safety Report 7380819-8 (Version None)
Quarter: 2011Q1

REPORT INFORMATION
  Report Type: 
  Country: None (occurrence: None)
  Receive Date: 20110329
  Receipt Date: 20110322
  Transmission Date: 20110831
  Serious: Yes (Other)
  Sender: FDA-Public Use
  Company Number: A0920130A

PATIENT
  Age: 58 Year
  Sex: Male

DRUGS (2)
  1. GLIPIZIDE [Suspect]
     Route: 065
  2. AVANDIA [Suspect]
     Route: 065

REACTIONS (3)
  - DRUG INEFFECTIVE [None]
  - DIABETES MELLITUS INADEQUATE CONTROL [None]
  - MALAISE [None]
